FAERS Safety Report 5087700-8 (Version None)
Quarter: 2006Q3

REPORT INFORMATION
  Report Type: 
  Country: None (occurrence: None)
  Receive Date: 20060731
  Receipt Date: 20060519
  Transmission Date: 20061208
  Serious: Yes (Other)
  Sender: FDA-Public Use
  Company Number: 200612349BWH

PATIENT

DRUGS (1)
  1. AVELOX [Suspect]
     Indication: DRUG USE FOR UNKNOWN INDICATION
     Dosage: ONCE, ORAL
     Route: 048

REACTIONS (4)
  - ANAPHYLACTIC REACTION [None]
  - FLUSHING [None]
  - HYPERSENSITIVITY [None]
  - SWELLING FACE [None]
